FAERS Safety Report 22610394 (Version 1)
Quarter: 2023Q2

REPORT INFORMATION
  Report Type: Spontaneous
  Country: US (occurrence: US)
  Receive Date: 20230616
  Receipt Date: 20230616
  Transmission Date: 20230721
  Serious: Yes (Hospitalization, Other)
  Sender: FDA-Public Use
  Company Number: US-PFIZER INC-PV202300105798

PATIENT
  Age: 69 Year
  Sex: Female

DRUGS (1)
  1. IBRANCE [Suspect]
     Active Substance: PALBOCICLIB
     Dosage: 1 CAPSULE DAILY X 21 DAYS EVERY 28 DAYS (3 WEEKS ON, 1 WEEK OFF)
     Route: 048
     Dates: start: 20220823

REACTIONS (4)
  - Syncope [Unknown]
  - Stenosis [Unknown]
  - Loss of consciousness [Unknown]
  - Dizziness [Unknown]
